FAERS Safety Report 9256734 (Version 1)
Quarter: 2013Q2

REPORT INFORMATION
  Report Type: Spontaneous
  Country: AU (occurrence: AU)
  Receive Date: 20130426
  Receipt Date: 20130426
  Transmission Date: 20140414
  Serious: Yes (Disabling)
  Sender: FDA-Public Use
  Company Number: AU-009507513-1304AUS005541

PATIENT
  Age: 60 Year
  Sex: Female
  Weight: 70 kg

DRUGS (2)
  1. NOROXIN [Suspect]
     Indication: DIARRHOEA INFECTIOUS
     Dosage: 2 STAT PRN
     Route: 048
     Dates: start: 20130222, end: 20130222
  2. DOXYCYCLINE [Suspect]
     Indication: MALARIA PROPHYLAXIS
     Dosage: TOTAL DAILY DOSE 100 MG (1 D)
     Route: 048

REACTIONS (2)
  - Ageusia [Not Recovered/Not Resolved]
  - Dysgeusia [Not Recovered/Not Resolved]
